FAERS Safety Report 7098218-5 (Version None)
Quarter: 2010Q4

REPORT INFORMATION
  Report Type: 
  Country: None (occurrence: None)
  Receive Date: 20101104
  Receipt Date: 20101021
  Transmission Date: 20110411
  Serious: Yes (Other)
  Sender: FDA-Public Use
  Company Number: BR-001322

PATIENT
  Sex: Male
  Weight: 16 kg

DRUGS (2)
  1. NAGLAZYME [Suspect]
     Indication: MUCOPOLYSACCHARIDOSIS VI
     Dosage: 15 MG 1X/WEEK, 3 BOTTLES INTRAVENOUS DRIP
     Route: 042
  2. DEXCHLORPHENIRAMIDE [Concomitant]

REACTIONS (3)
  - CARDIAC DISORDER [None]
  - HYPOKALAEMIA [None]
  - URINARY TRACT INFECTION [None]
